FAERS Safety Report 8043108-4 (Version None)
Quarter: 2012Q1

REPORT INFORMATION
  Report Type: 
  Country: None (occurrence: None)
  Receive Date: 20120112
  Receipt Date: 20120110
  Transmission Date: 20120608
  Serious: No
  Sender: FDA-Public Use
  Company Number: US-BAYER-2012-003461

PATIENT
  Sex: Female

DRUGS (2)
  1. AUGMENTIN '125' [Concomitant]
  2. AVELOX [Suspect]
     Indication: SINUSITIS
     Dosage: 400MG ONCE PER DAY FOR 10 DAYS
     Route: 048
     Dates: start: 20111219, end: 20111228

REACTIONS (1)
  - TENDONITIS [None]
